FAERS Safety Report 24088125 (Version 3)
Quarter: 2024Q3

REPORT INFORMATION
  Report Type: Spontaneous
  Country: US (occurrence: US)
  Receive Date: 20240715
  Receipt Date: 20240727
  Transmission Date: 20241016
  Serious: No
  Sender: AMGEN
  Company Number: US-AMGEN-USASP2024137816

PATIENT
  Age: 59 Year
  Sex: Male
  Weight: 85.1 kg

DRUGS (2)
  1. VECTIBIX [Suspect]
     Active Substance: PANITUMUMAB
     Indication: Colorectal cancer
     Dosage: 500 MILLIGRAM, Q2WK  (400 MG X 1 VIAL)
     Route: 042
     Dates: start: 20230726
  2. VECTIBIX [Suspect]
     Active Substance: PANITUMUMAB
     Dosage: 500 MILLIGRAM, Q2WK  (100 MG X 1 VIAL)
     Route: 042

REACTIONS (3)
  - Illness [Unknown]
  - Pain in extremity [Unknown]
  - Asthenia [Unknown]

NARRATIVE: CASE EVENT DATE: 20240101
